FAERS Safety Report 7366446-7 (Version None)
Quarter: 2011Q1

REPORT INFORMATION
  Report Type: 
  Country: None (occurrence: None)
  Receive Date: 20110322
  Receipt Date: 20110308
  Transmission Date: 20110831
  Serious: Yes (Hospitalization)
  Sender: FDA-Public Use
  Company Number: US-JNJFOC-20090707727

PATIENT
  Sex: Female
  Weight: 49 kg

DRUGS (5)
  1. REMICADE [Suspect]
     Indication: GROWTH RETARDATION
     Dosage: TOTAL 15 DOSES
     Route: 042
  2. REMICADE [Suspect]
     Indication: CROHN'S DISEASE
     Dosage: TOTAL 15 DOSES
     Route: 042
  3. PREDNISONE [Concomitant]
  4. HUMIRA [Concomitant]
     Indication: CROHN'S DISEASE
  5. FLAGYL [Concomitant]

REACTIONS (1)
  - CROHN'S DISEASE [None]
